FAERS Safety Report 17140910 (Version 1)
Quarter: 2019Q4

REPORT INFORMATION
  Report Type: Spontaneous
  Country: US (occurrence: US)
  Receive Date: 20191211
  Receipt Date: 20191211
  Transmission Date: 20200122
  Serious: No
  Sender: FDA-Public Use
  Company Number: US-TEVA-2019-US-1151980

PATIENT
  Sex: Female

DRUGS (1)
  1. LIDOCAINE AND PRILOCAINE [Suspect]
     Active Substance: LIDOCAINE\PRILOCAINE
     Indication: PAIN
     Dosage: LIDOCAINE 2.5% AND PRILOCAINE 2.5%

REACTIONS (2)
  - Product closure removal difficult [Unknown]
  - Drug ineffective [Unknown]
